FAERS Safety Report 10173365 (Version 1)
Quarter: 2014Q2

REPORT INFORMATION
  Report Type: Spontaneous
  Country: US (occurrence: US)
  Receive Date: 20140515
  Receipt Date: 20140515
  Transmission Date: 20141212
  Serious: No
  Sender: FDA-Public Use
  Company Number: US-TEVA-481513USA

PATIENT
  Age: 69 Year
  Sex: Female
  Weight: 63.56 kg

DRUGS (1)
  1. QVAR [Suspect]
     Indication: RESPIRATORY TRACT INFLAMMATION
     Route: 055
     Dates: start: 201404

REACTIONS (1)
  - Respiratory tract irritation [Recovered/Resolved]
